FAERS Safety Report 13946987 (Version 2)
Quarter: 2017Q3

REPORT INFORMATION
  Report Type: Report from Study
  Country: KR (occurrence: KR)
  Receive Date: 20170907
  Receipt Date: 20170925
  Transmission Date: 20171128
  Serious: Yes (Other)
  Sender: FDA-Public Use
  Company Number: KR-GLAXOSMITHKLINE-KR2017GSK135696

PATIENT
  Age: 77 Year
  Sex: Male
  Weight: 52 kg

DRUGS (6)
  1. UMECLIDINIUM BR+VILANTEROL TRIFENATATE [Suspect]
     Active Substance: UMECLIDINIUM BROMIDE\VILANTEROL TRIFENATATE
     Indication: CHRONIC OBSTRUCTIVE PULMONARY DISEASE
     Dosage: 25 MG, QD
     Route: 055
     Dates: start: 20160607, end: 201611
  2. CURAN [Concomitant]
     Active Substance: RANITIDINE HYDROCHLORIDE
  3. CUPARIN [Concomitant]
  4. DICHLOZID [Concomitant]
  5. KANARB [Concomitant]
  6. MUTERAN [Concomitant]
     Active Substance: ACETYLCYSTEINE

REACTIONS (1)
  - Glaucoma [Unknown]

NARRATIVE: CASE EVENT DATE: 201611
